FAERS Safety Report 5527758-2 (Version None)
Quarter: 2007Q4

REPORT INFORMATION
  Report Type: 
  Country: None (occurrence: None)
  Receive Date: 20071128
  Receipt Date: 20071115
  Transmission Date: 20080405
  Serious: Yes (Hospitalization)
  Sender: FDA-Public Use
  Company Number: JP-ELI_LILLY_AND_COMPANY-JP200710002444

PATIENT
  Age: 57 Year
  Sex: Male

DRUGS (2)
  1. HUMALOG [Suspect]
     Route: 058
     Dates: start: 20060101
  2. HUMAN INSULIN (RDNA ORIGIN) [Suspect]
     Route: 058
     Dates: start: 20060101

REACTIONS (1)
  - DRUG HYPERSENSITIVITY [None]
